FAERS Safety Report 9836252 (Version 1)
Quarter: 2014Q1

REPORT INFORMATION
  Report Type: Spontaneous
  Country: CA (occurrence: CA)
  Receive Date: 20140123
  Receipt Date: 20140123
  Transmission Date: 20141002
  Serious: Yes (Life-Threatening, Disabling)
  Sender: FDA-Public Use
  Company Number: CA-AMGEN-CANSP2014004447

PATIENT
  Age: 70 Year
  Sex: Male
  Weight: 66.21 kg

DRUGS (8)
  1. PROLIA [Suspect]
     Indication: PRODUCT USED FOR UNKNOWN INDICATION
     Dosage: 60 MG, UNK
     Route: 058
  2. ASPIRIN [Concomitant]
  3. BISOPROLOL [Concomitant]
  4. CALTRATE PLUS                      /01438001/ [Concomitant]
  5. CHOLECALCIFEROL [Concomitant]
  6. OLMETEC PLUS [Concomitant]
  7. ROSUVASTATIN [Concomitant]
  8. TECTA [Concomitant]

REACTIONS (10)
  - Angina pectoris [Not Recovered/Not Resolved]
  - Back disorder [Not Recovered/Not Resolved]
  - Decreased appetite [Not Recovered/Not Resolved]
  - Diarrhoea [Not Recovered/Not Resolved]
  - Dizziness [Not Recovered/Not Resolved]
  - Gastric disorder [Not Recovered/Not Resolved]
  - Gingival disorder [Not Recovered/Not Resolved]
  - Oesophageal disorder [Not Recovered/Not Resolved]
  - Vision blurred [Not Recovered/Not Resolved]
  - Asthenia [Not Recovered/Not Resolved]
